FAERS Safety Report 24258485 (Version 1)
Quarter: 2024Q3

REPORT INFORMATION
  Report Type: Spontaneous
  Country: US (occurrence: US)
  Receive Date: 20240828
  Receipt Date: 20240828
  Transmission Date: 20241016
  Serious: No
  Sender: PFIZER
  Company Number: US-PFIZER INC-202400243273

PATIENT
  Age: 31 Year
  Sex: Female

DRUGS (7)
  1. PAXLOVID [Suspect]
     Active Substance: NIRMATRELVIR\RITONAVIR
     Indication: COVID-19 treatment
     Dosage: [NIRMATRELVIR 300 MG]/[RITONAVIR 100 MG]; 2X/DAY
     Dates: start: 20240821
  2. LIALDA [Concomitant]
     Active Substance: MESALAMINE
     Dosage: UNK
     Dates: start: 200001, end: 202408
  3. CANASA [Concomitant]
     Active Substance: MESALAMINE
     Dosage: UNK
     Dates: start: 200001, end: 202408
  4. IMODIUM [Concomitant]
     Active Substance: LOPERAMIDE HYDROCHLORIDE
     Dosage: UNK
     Dates: start: 200001, end: 202408
  5. RINVOQ [Concomitant]
     Active Substance: UPADACITINIB
     Dosage: UNK
     Dates: start: 20240401, end: 20240820
  6. VITAMINS [Concomitant]
     Active Substance: VITAMINS
     Dosage: UNK
     Dates: start: 202101, end: 202408
  7. SEYSARA [Concomitant]
     Active Substance: SARECYCLINE HYDROCHLORIDE
     Dosage: UNK
     Dates: start: 20240601, end: 202408

REACTIONS (1)
  - Dysgeusia [Unknown]

NARRATIVE: CASE EVENT DATE: 20240821
